FAERS Safety Report 9435436 (Version 1)
Quarter: 2013Q3

REPORT INFORMATION
  Report Type: Spontaneous
  Country: ES (occurrence: ES)
  Receive Date: 20130801
  Receipt Date: 20130801
  Transmission Date: 20140515
  Serious: Yes (Hospitalization)
  Sender: FDA-Public Use
  Company Number: ES-GLAXOSMITHKLINE-B0912164A

PATIENT
  Age: 80 Year
  Sex: Male

DRUGS (8)
  1. ARIXTRA [Suspect]
     Indication: ACUTE MYOCARDIAL INFARCTION
     Dosage: 2.5MG PER DAY
     Route: 058
     Dates: start: 20121228, end: 20130101
  2. ADIRO [Suspect]
     Indication: ACUTE MYOCARDIAL INFARCTION
     Dosage: 100MG PER DAY
     Route: 048
     Dates: start: 1993
  3. BIVALIRUDIN [Suspect]
     Indication: ACUTE MYOCARDIAL INFARCTION
     Dosage: 250MG PER DAY
     Route: 042
     Dates: start: 20121228, end: 20121228
  4. PRASUGREL HYDROCHLORIDE [Suspect]
     Indication: ACUTE MYOCARDIAL INFARCTION
     Dosage: 10MG PER DAY
     Route: 048
     Dates: start: 20121228
  5. REOPRO [Suspect]
     Indication: ACUTE MYOCARDIAL INFARCTION
     Dosage: 10MG PER DAY
     Route: 042
     Dates: start: 20121228, end: 20121228
  6. LIDOCAINE [Concomitant]
     Indication: ARRHYTHMIA
     Dosage: 3000MG PER DAY
     Route: 042
     Dates: start: 20121228, end: 20121229
  7. NOREPINEPHRINE HYDROCHLORIDE [Concomitant]
     Indication: HYPOTENSION
     Dosage: 30MG PER DAY
     Route: 042
     Dates: start: 20121228, end: 20121229
  8. PROPOFOL [Concomitant]
     Indication: SEDATION
     Dosage: 1000MG PER DAY
     Route: 042
     Dates: start: 20121228, end: 20121229

REACTIONS (3)
  - Upper gastrointestinal haemorrhage [Recovered/Resolved]
  - Haematuria [Recovered/Resolved]
  - Hypocoagulable state [Recovered/Resolved]
